FAERS Safety Report 4588688-6 (Version None)
Quarter: 2005Q1

REPORT INFORMATION
  Report Type: 
  Country: None (occurrence: None)
  Receive Date: 20050214
  Receipt Date: 20050214
  Transmission Date: 20050727
  Serious: Yes (Hospitalization, Other)
  Sender: FDA-Public Use
  Company Number: None

PATIENT
  Age: 80 Year
  Sex: Female
  Weight: 66.6788 kg

DRUGS (9)
  1. MORPHINE [Suspect]
     Indication: SEDATION
     Dosage: 10 MG IV OTO
     Route: 042
     Dates: start: 20041105
  2. LORAZEPAM [Suspect]
     Indication: SEDATION
     Dosage: 2 MG IV OTO
     Route: 042
     Dates: start: 20041105
  3. LIPITOR [Concomitant]
  4. PLAVIX [Concomitant]
  5. COMBIVENT [Concomitant]
  6. ADVAIR DISKUS 100/50 [Concomitant]
  7. ASPIRIN [Concomitant]
  8. PEPCID AC [Concomitant]
  9. TUSSIONEX SUSPENSION [Concomitant]

REACTIONS (6)
  - APNOEA [None]
  - CHRONIC OBSTRUCTIVE AIRWAYS DISEASE EXACERBATED [None]
  - COMA [None]
  - GENERAL PHYSICAL HEALTH DETERIORATION [None]
  - MALIGNANT PLEURAL EFFUSION [None]
  - OXYGEN SATURATION DECREASED [None]
